FAERS Safety Report 9751015 (Version 1)
Quarter: 2013Q4

REPORT INFORMATION
  Report Type: Spontaneous
  Country: US (occurrence: US)
  Receive Date: 20131212
  Receipt Date: 20131212
  Transmission Date: 20140711
  Serious: No
  Sender: FDA-Public Use
  Company Number: US-TEVA-400025USA

PATIENT
  Sex: Female
  Weight: 59.47 kg

DRUGS (6)
  1. PARAGARD 380A [Suspect]
     Indication: CONTRACEPTION
     Route: 015
     Dates: start: 2008, end: 2010
  2. MULTIVITAMIN [Concomitant]
  3. VITAMIN D [Concomitant]
  4. VITAMIN C [Concomitant]
  5. VITAMIN E [Concomitant]
  6. ACIDOPHILUS [Concomitant]

REACTIONS (2)
  - Uterine leiomyoma [Unknown]
  - Uterine enlargement [Unknown]
